FAERS Safety Report 16719768 (Version 1)
Quarter: 2019Q3

REPORT INFORMATION
  Report Type: Spontaneous
  Country: NL (occurrence: NL)
  Receive Date: 20190820
  Receipt Date: 20190820
  Transmission Date: 20191005
  Serious: Yes (Other)
  Sender: FDA-Public Use
  Company Number: NL-PFIZER INC-2019352281

PATIENT
  Age: 77 Year
  Sex: Female
  Weight: 82 kg

DRUGS (3)
  1. FARMORUBICINE [Suspect]
     Active Substance: EPIRUBICIN HYDROCHLORIDE
     Dosage: UNK
  2. TAXOTERE [Suspect]
     Active Substance: DOCETAXEL
     Dosage: UNK
  3. NOLVADEX [Suspect]
     Active Substance: TAMOXIFEN CITRATE
     Dosage: UNK
     Route: 048

REACTIONS (2)
  - Non-Hodgkin^s lymphoma [Not Recovered/Not Resolved]
  - Second primary malignancy [Not Recovered/Not Resolved]
